FAERS Safety Report 6381565-X (Version None)
Quarter: 2009Q3

REPORT INFORMATION
  Report Type: 
  Country: None (occurrence: None)
  Receive Date: 20090925
  Receipt Date: 20090914
  Transmission Date: 20100115
  Serious: Yes (Other)
  Sender: FDA-Public Use
  Company Number: PAR_03185_2009

PATIENT
  Age: 68 Year
  Sex: Male
  Weight: 86 kg

DRUGS (2)
  1. IBUPROFEN [Suspect]
     Indication: PAIN IN EXTREMITY
     Dosage: (1200 MG ORAL)
     Route: 048
     Dates: start: 20090728, end: 20090730
  2. SIMVABETA (SIMVABETA - SIMVASTATIN) (NOT SPECIFIED) [Suspect]
     Indication: HYPERLIPIDAEMIA
     Dosage: (40 MG QD ORAL)
     Route: 048

REACTIONS (2)
  - RENAL IMPAIRMENT [None]
  - RHABDOMYOLYSIS [None]
